FAERS Safety Report 21608144 (Version 1)
Quarter: 2022Q4

REPORT INFORMATION
  Report Type: Spontaneous
  Country: KR (occurrence: KR)
  Receive Date: 20221117
  Receipt Date: 20221117
  Transmission Date: 20230112
  Serious: Yes (Other)
  Sender: FDA-Public Use
  Company Number: KR-GLAXOSMITHKLINE-KR2022APC167492

PATIENT

DRUGS (5)
  1. LAMICTAL [Suspect]
     Active Substance: LAMOTRIGINE
     Indication: Product used for unknown indication
     Dosage: 100 MG, BID
  2. TRILEPTAL [Suspect]
     Active Substance: OXCARBAZEPINE
     Indication: Product used for unknown indication
     Dosage: UNK
  3. TRILEPTAL [Suspect]
     Active Substance: OXCARBAZEPINE
     Dosage: Z, 2 CC EVERY 2 WEEKS
  4. CLOBAZAM [Suspect]
     Active Substance: CLOBAZAM
     Indication: Product used for unknown indication
     Dosage: 1 DF
  5. LACOSAMIDE [Suspect]
     Active Substance: LACOSAMIDE
     Indication: Product used for unknown indication
     Dosage: 1.5 DF

REACTIONS (4)
  - Depressed level of consciousness [Unknown]
  - Gait disturbance [Unknown]
  - Muscle strength abnormal [Unknown]
  - Drug ineffective [Unknown]
